FAERS Safety Report 22159410 (Version 2)
Quarter: 2023Q2

REPORT INFORMATION
  Report Type: Spontaneous
  Country: US (occurrence: US)
  Receive Date: 20230331
  Receipt Date: 20230403
  Transmission Date: 20230722
  Serious: No
  Sender: FDA-Public Use
  Company Number: US-ELI_LILLY_AND_COMPANY-US202303016646

PATIENT
  Age: 75 Year
  Sex: Male

DRUGS (11)
  1. HUMALOG KWIKPEN [Suspect]
     Active Substance: INSULIN LISPRO
     Indication: Type 2 diabetes mellitus
     Dosage: 12 U, UNKNOWN, FROM 4 UPTO 12 UNITS BEFORE MEALS
     Route: 065
     Dates: start: 2010
  2. HUMALOG KWIKPEN [Suspect]
     Active Substance: INSULIN LISPRO
     Indication: Type 2 diabetes mellitus
     Dosage: 12 U, UNKNOWN, FROM 4 UPTO 12 UNITS BEFORE MEALS
     Route: 065
     Dates: start: 2010
  3. HUMALOG KWIKPEN [Suspect]
     Active Substance: INSULIN LISPRO
     Indication: Type 2 diabetes mellitus
     Dosage: 12 U, UNKNOWN, FROM 4 UPTO 12 UNITS BEFORE MEALS
     Route: 065
     Dates: start: 2010
  4. HUMALOG KWIKPEN [Suspect]
     Active Substance: INSULIN LISPRO
     Indication: Type 2 diabetes mellitus
     Dosage: 12 U, UNKNOWN, FROM 4 UPTO 12 UNITS BEFORE MEALS
     Route: 065
     Dates: start: 2010
  5. HUMALOG KWIKPEN [Suspect]
     Active Substance: INSULIN LISPRO
     Dosage: 8 U, DAILY
     Route: 065
     Dates: start: 2016
  6. HUMALOG KWIKPEN [Suspect]
     Active Substance: INSULIN LISPRO
     Dosage: 8 U, DAILY
     Route: 065
     Dates: start: 2016
  7. HUMALOG KWIKPEN [Suspect]
     Active Substance: INSULIN LISPRO
     Dosage: 8 U, DAILY
     Route: 065
  8. HUMALOG KWIKPEN [Suspect]
     Active Substance: INSULIN LISPRO
     Dosage: 8 U, DAILY
     Route: 065
  9. HUMALOG KWIKPEN [Suspect]
     Active Substance: INSULIN LISPRO
     Dosage: 12 U, UNKNOWN, FROM 4 UPTO 12 UNITS BEFORE MEALS
     Route: 065
  10. HUMALOG KWIKPEN [Suspect]
     Active Substance: INSULIN LISPRO
     Dosage: 12 U, UNKNOWN, FROM 4 UPTO 12 UNITS BEFORE MEALS
     Route: 065
  11. LANTUS [Concomitant]
     Active Substance: INSULIN GLARGINE
     Indication: Type 2 diabetes mellitus
     Dosage: 30 U, DAILY

REACTIONS (4)
  - Blood glucose increased [Unknown]
  - Incorrect dose administered [Unknown]
  - Incorrect product administration duration [Unknown]
  - Injection site pain [Unknown]

NARRATIVE: CASE EVENT DATE: 20230331
